FAERS Safety Report 15146946 (Version 1)
Quarter: 2018Q3

REPORT INFORMATION
  Report Type: Spontaneous
  Country: IT (occurrence: IT)
  Receive Date: 20180716
  Receipt Date: 20180716
  Transmission Date: 20181010
  Serious: Yes (Disabling)
  Sender: FDA-Public Use
  Company Number: IT-KRKA, D.D., NOVO MESTO-2052099

PATIENT
  Age: 2 Month
  Sex: Male
  Weight: 4 kg

DRUGS (1)
  1. ENALAPRIL MALEATE. [Suspect]
     Active Substance: ENALAPRIL MALEATE
     Indication: HYPERTENSION
     Route: 042
     Dates: start: 20180515, end: 20180516

REACTIONS (6)
  - Developmental regression [Recovered/Resolved with Sequelae]
  - Neonatal hypoxia [Recovered/Resolved with Sequelae]
  - Areflexia [Recovered/Resolved with Sequelae]
  - Brain hypoxia [Recovered/Resolved with Sequelae]
  - Infantile spasms [Recovered/Resolved with Sequelae]
  - Hypotension [Recovered/Resolved with Sequelae]

NARRATIVE: CASE EVENT DATE: 20180515
